FAERS Safety Report 9046401 (Version 1)
Quarter: 2013Q1

REPORT INFORMATION
  Report Type: Report from Study
  Country: DZ (occurrence: DZ)
  Receive Date: 20130201
  Receipt Date: 20130201
  Transmission Date: 20140127
  Serious: Yes (Other)
  Sender: FDA-Public Use
  Company Number: DZ-MILLENNIUM PHARMACEUTICALS, INC.-2013-00871

PATIENT
  Sex: 0

DRUGS (1)
  1. VELCADE [Suspect]
     Indication: PLASMA CELL MYELOMA
     Route: 065

REACTIONS (4)
  - Thrombocytopenia [Unknown]
  - Neuralgia [Unknown]
  - Neuropathy peripheral [Unknown]
  - Gastrointestinal disorder [Unknown]
